FAERS Safety Report 4559071-4 (Version None)
Quarter: 2005Q1

REPORT INFORMATION
  Report Type: 
  Country: None (occurrence: None)
  Receive Date: 20050124
  Receipt Date: 20050117
  Transmission Date: 20050727
  Serious: Yes (Life-Threatening, Other)
  Sender: FDA-Public Use
  Company Number: GB-BRISTOL-MYERS SQUIBB COMPANY-12826814

PATIENT
  Weight: 5 kg

DRUGS (8)
  1. CAPTOPRIL [Suspect]
     Indication: VASCULAR RESISTANCE SYSTEMIC INCREASED
     Dates: start: 20041207, end: 20041222
  2. SPIRONOLACTONE [Concomitant]
     Indication: FLUID OVERLOAD
     Route: 048
     Dates: start: 20041117
  3. FRUSEMIDE [Concomitant]
     Dates: start: 20041115
  4. CHLORAL HYDRATE [Concomitant]
     Route: 048
  5. ACETAMINOPHEN [Concomitant]
  6. CEFOTAXIME [Concomitant]
     Route: 042
     Dates: start: 20041110, end: 20041123
  7. CALCIUM-SANDOZ [Concomitant]
     Route: 048
     Dates: start: 20041117, end: 20041121
  8. PREDNISOLONE [Concomitant]
     Route: 048
     Dates: end: 20041223

REACTIONS (4)
  - DERMATITIS EXFOLIATIVE [None]
  - RASH ERYTHEMATOUS [None]
  - RASH GENERALISED [None]
  - STAPHYLOCOCCAL SEPSIS [None]
